FAERS Safety Report 14930167 (Version 1)
Quarter: 2018Q2

REPORT INFORMATION
  Report Type: Spontaneous
  Country: JP (occurrence: JP)
  Receive Date: 20180523
  Receipt Date: 20180523
  Transmission Date: 20180711
  Serious: Yes (Death, Hospitalization)
  Sender: FDA-Public Use
  Company Number: JP-ELI_LILLY_AND_COMPANY-JP201805008334

PATIENT
  Age: 81 Year
  Sex: Male
  Weight: 54 kg

DRUGS (20)
  1. ABRAXANE [Suspect]
     Active Substance: PACLITAXEL
     Indication: PANCREATIC CARCINOMA
     Dosage: UNK
     Route: 041
  2. ABRAXANE [Suspect]
     Active Substance: PACLITAXEL
     Dosage: 164 MG, OTHER
     Route: 041
     Dates: start: 20180329, end: 20180405
  3. METHYCOBAL [Concomitant]
     Active Substance: METHYLCOBALAMIN
     Dosage: 1000 UG, TID
     Route: 048
     Dates: start: 20180301, end: 20180424
  4. MICARDIS [Concomitant]
     Active Substance: TELMISARTAN
     Dosage: 40 MG, EACH MORNING
     Route: 048
     Dates: start: 20180301, end: 20180424
  5. MYSLEE [Concomitant]
     Active Substance: ZOLPIDEM TARTRATE
     Dosage: 10 MG, EACH EVENING
     Route: 048
     Dates: start: 20180329, end: 20180409
  6. ORGADRONE                          /00016002/ [Concomitant]
     Dosage: 7.6 MG, DAILY
     Route: 041
     Dates: start: 20180405, end: 20180405
  7. MYSLEE [Concomitant]
     Active Substance: ZOLPIDEM TARTRATE
     Dosage: 20 MG, EACH EVENING
     Route: 048
     Dates: start: 20180410, end: 20180416
  8. BIO-THREE [Concomitant]
     Active Substance: HERBALS
     Dosage: 2 DF, TID
     Route: 048
     Dates: start: 20180329, end: 20180424
  9. GEMZAR [Suspect]
     Active Substance: GEMCITABINE HYDROCHLORIDE
     Dosage: 1315 MG, OTHER
     Route: 041
     Dates: start: 20180329, end: 20180405
  10. NORVASC [Concomitant]
     Active Substance: AMLODIPINE BESYLATE
     Dosage: 5.0 MG, EACH MORNING
     Route: 048
     Dates: start: 20180301, end: 20180425
  11. URIEF [Concomitant]
     Active Substance: SILODOSIN
     Dosage: 4 MG, BID
     Route: 048
     Dates: start: 20180315, end: 20180507
  12. DECADRON [Concomitant]
     Active Substance: DEXAMETHASONE
     Dosage: 8 MG, EACH MORNING
     Route: 048
     Dates: start: 20180405, end: 20180406
  13. COLONEL [Concomitant]
     Active Substance: CALCIUM POLYCARBOPHIL
     Dosage: 0.6 G, TID
     Route: 048
     Dates: start: 20180409, end: 20180411
  14. GRANISETRON [Concomitant]
     Active Substance: GRANISETRON
     Dosage: 3 MG, DAILY
     Route: 041
     Dates: start: 20180405, end: 20180405
  15. LYRICA OD [Concomitant]
     Dosage: 150 MG, EACH EVENING
     Route: 048
     Dates: start: 20180301, end: 20180424
  16. AVOLVE [Concomitant]
     Active Substance: DUTASTERIDE
     Dosage: 0.5 MG, EACH MORNING
     Route: 048
     Dates: start: 20180315, end: 20180424
  17. GEMZAR [Suspect]
     Active Substance: GEMCITABINE HYDROCHLORIDE
     Indication: PANCREATIC CARCINOMA
     Dosage: UNK
     Route: 041
  18. URITOS [Concomitant]
     Active Substance: IMIDAFENACIN
     Dosage: 0.1 MG, EACH EVENING
     Route: 048
     Dates: start: 20180315, end: 20180424
  19. MAGMITT [Concomitant]
     Active Substance: MAGNESIUM OXIDE
     Dosage: 330 MG, TID
     Route: 048
     Dates: start: 20180329, end: 20180411
  20. TAKEPRON [Concomitant]
     Active Substance: LANSOPRAZOLE
     Dosage: 15 MG, EACH MORNING
     Route: 048
     Dates: start: 20180329, end: 20180424

REACTIONS (3)
  - Neutrophil count decreased [Fatal]
  - Vomiting [Unknown]
  - White blood cell count decreased [Recovered/Resolved]

NARRATIVE: CASE EVENT DATE: 20180410
